FAERS Safety Report 10739129 (Version 3)
Quarter: 2015Q1

REPORT INFORMATION
  Report Type: Spontaneous
  Country: HU (occurrence: HU)
  Receive Date: 20150126
  Receipt Date: 20150206
  Transmission Date: 20150721
  Serious: Yes (Hospitalization, Other)
  Sender: FDA-Public Use
  Company Number: HU-PFIZER INC-2014331572

PATIENT
  Age: 84 Year
  Sex: Female
  Weight: 85 kg

DRUGS (2)
  1. CARDURA XL [Suspect]
     Active Substance: DOXAZOSIN MESYLATE
     Dosage: 1 TABLET
     Dates: start: 20141007
  2. KALMOPYRIN [Concomitant]
     Dosage: UNK

REACTIONS (17)
  - Arthralgia [Unknown]
  - Fall [Unknown]
  - Blood pressure inadequately controlled [Unknown]
  - Pain [Unknown]
  - Dizziness [Unknown]
  - Weight loss poor [Unknown]
  - Diabetes mellitus [Unknown]
  - Drug administration error [Unknown]
  - Blood pressure increased [Unknown]
  - Asthenia [Unknown]
  - Epistaxis [Unknown]
  - Blood pressure decreased [Unknown]
  - Hypoaesthesia [Unknown]
  - Joint swelling [Unknown]
  - Mobility decreased [Unknown]
  - Drug ineffective [Unknown]
  - Arthropathy [Unknown]
